FAERS Safety Report 4263391-0 (Version None)
Quarter: 2004Q1

REPORT INFORMATION
  Report Type: 
  Country: None (occurrence: None)
  Receive Date: 20040105
  Receipt Date: 20031222
  Transmission Date: 20041129
  Serious: Yes (Disabling)
  Sender: FDA-Public Use
  Company Number: US-ROCHE-354748

PATIENT
  Sex: Male

DRUGS (1)
  1. LARIAM [Suspect]
     Indication: MALARIA PROPHYLAXIS
     Dosage: 23 TABLETS DISPENSED.
     Route: 048
     Dates: start: 20021115, end: 20030515

REACTIONS (11)
  - BALANCE DISORDER [None]
  - HALLUCINATION [None]
  - HEPATIC FAILURE [None]
  - NEUROPATHY [None]
  - PANIC ATTACK [None]
  - PARANOIA [None]
  - PHOTOPHOBIA [None]
  - SUICIDAL IDEATION [None]
  - TREMOR [None]
  - VIIITH NERVE LESION [None]
  - VISUAL DISTURBANCE [None]
